FAERS Safety Report 5202648-3 (Version None)
Quarter: 2007Q1

REPORT INFORMATION
  Report Type: 
  Country: None (occurrence: None)
  Receive Date: 20070109
  Receipt Date: 20061228
  Transmission Date: 20070707
  Serious: Yes (Hospitalization, Other)
  Sender: FDA-Public Use
  Company Number: JP-PFIZER INC-2006153283

PATIENT
  Age: 72 Year
  Sex: Male

DRUGS (4)
  1. VFEND [Suspect]
     Indication: ASPERGILLOMA
     Dosage: DAILY DOSE:300MG
     Route: 048
     Dates: start: 20061107, end: 20060101
  2. AMBISOME [Concomitant]
     Route: 042
  3. THEOPHYLLINE [Concomitant]
     Route: 048
  4. TORSEMIDE [Concomitant]
     Route: 048

REACTIONS (2)
  - BRAIN NATRIURETIC PEPTIDE INCREASED [None]
  - CARDIAC FAILURE CHRONIC [None]
